FAERS Safety Report 17119527 (Version 2)
Quarter: 2020Q2

REPORT INFORMATION
  Report Type: Spontaneous
  Country: ES (occurrence: ES)
  Receive Date: 20191206
  Receipt Date: 20200622
  Transmission Date: 20200713
  Serious: Yes (Death, Life-Threatening, Hospitalization)
  Sender: FDA-Public Use
  Company Number: ES-B.I. PHARMACEUTICALS,INC./RIDGEFIELD-2019-12-117811

PATIENT
  Age: 51 Year
  Sex: Male

DRUGS (5)
  1. LAMIVUDINA [Suspect]
     Active Substance: LAMIVUDINE
     Indication: ACQUIRED IMMUNODEFICIENCY SYNDROME
     Dosage: 150MG/12H
     Route: 048
     Dates: start: 20140202, end: 20140320
  2. VIRAMUNE [Suspect]
     Active Substance: NEVIRAPINE
     Indication: ACQUIRED IMMUNODEFICIENCY SYNDROME
     Dosage: DOSE UNIT FREQUENCY: 400 MILLIGRAMS / DOSE PER APPLICATION: 200 MILLIGRAMS / NUMBER OF APPLICATIONS
     Route: 048
     Dates: start: 20140202, end: 20140320
  3. ESTAVUDINA [Suspect]
     Active Substance: STAVUDINE
     Indication: ACQUIRED IMMUNODEFICIENCY SYNDROME
     Dosage: FREQUENCY UNIT: 0 DAY
     Route: 048
     Dates: start: 20140202, end: 20140320
  4. ENALAPRIL [Concomitant]
     Active Substance: ENALAPRIL
     Indication: HYPERTENSION
     Dosage: DOSE UNIT FREQUENCY: 20 MILLIGRAMS // DOSE PER APPLICATION: 20 MILLIGRAMS // NUMBER OF APPLICATIONS
     Route: 048
     Dates: start: 2009
  5. METFORMINA [METFORMIN] [Concomitant]
     Active Substance: METFORMIN HYDROCHLORIDE
     Indication: TYPE 2 DIABETES MELLITUS
     Dosage: DOSE UNIT FREQUENCY: 1700 MILLIGRAMS/DOSE PER APPLICATION: 850 MILLIGRAMS/NUMBER OF APPLICATION
     Route: 048
     Dates: start: 2009

REACTIONS (7)
  - Hepatic failure [Not Recovered/Not Resolved]
  - Pseudomembranous colitis [Fatal]
  - Gastrointestinal haemorrhage [Fatal]
  - Rash [Not Recovered/Not Resolved]
  - Drug reaction with eosinophilia and systemic symptoms [Not Recovered/Not Resolved]
  - Pyrexia [Not Recovered/Not Resolved]
  - Acute kidney injury [Not Recovered/Not Resolved]

NARRATIVE: CASE EVENT DATE: 20140313
